FAERS Safety Report 6012626-2 (Version None)
Quarter: 2008Q4

REPORT INFORMATION
  Report Type: 
  Country: None (occurrence: None)
  Receive Date: 20081218
  Receipt Date: 20010709
  Transmission Date: 20090506
  Serious: Yes (Death, Hospitalization)
  Sender: FDA-Public Use
  Company Number: FR-GENENTECH-098664

PATIENT
  Age: 52 Year
  Sex: Female
  Weight: 66 kg

DRUGS (2)
  1. HERCEPTIN [Suspect]
     Indication: BREAST CANCER METASTATIC
     Route: 042
     Dates: start: 20010405, end: 20010405
  2. PACLITAXEL [Suspect]
     Route: 042
     Dates: start: 20010406, end: 20010406

REACTIONS (6)
  - ACUTE RESPIRATORY DISTRESS SYNDROME [None]
  - ANAEMIA [None]
  - BRAIN OEDEMA [None]
  - DEATH [None]
  - PLEURAL EFFUSION [None]
  - RENAL FAILURE [None]
